FAERS Safety Report 9802977 (Version 1)
Quarter: 2014Q1

REPORT INFORMATION
  Report Type: Spontaneous
  Country: US (occurrence: None)
  Receive Date: 20140106
  Receipt Date: 20140106
  Transmission Date: 20141002
  Serious: Yes (Other)
  Sender: FDA-Public Use
  Company Number: None

PATIENT
  Age: 28 Year
  Sex: Female
  Weight: 86.18 kg

DRUGS (1)
  1. DIFLUCAN [Suspect]
     Indication: FUNGAL INFECTION
     Route: 048

REACTIONS (5)
  - Pruritus [None]
  - Burning sensation [None]
  - Erythema [None]
  - Lip swelling [None]
  - Eye swelling [None]
